FAERS Safety Report 21760225 (Version 3)
Quarter: 2023Q2

REPORT INFORMATION
  Report Type: Report from Study
  Country: US (occurrence: US)
  Receive Date: 20221221
  Receipt Date: 20230408
  Transmission Date: 20230721
  Serious: No
  Sender: FDA-Public Use
  Company Number: US-002147023-NVSC2022US294482

PATIENT
  Sex: Female

DRUGS (3)
  1. ILARIS [Suspect]
     Active Substance: CANAKINUMAB
     Indication: Pyrexia
     Dosage: 50 MG, OTHER (EVERY 8 WEEKS)
     Route: 058
     Dates: start: 20220506
  2. ILARIS [Suspect]
     Active Substance: CANAKINUMAB
     Dosage: 50 MG, OTHER (EVERY 8 WEEKS)
     Route: 058
     Dates: start: 20220903
  3. ILARIS [Suspect]
     Active Substance: CANAKINUMAB
     Dosage: 50 MG, OTHER (Q8W)
     Route: 058

REACTIONS (2)
  - Ear infection [Unknown]
  - Inappropriate schedule of product administration [Unknown]
